FAERS Safety Report 9272390 (Version 3)
Quarter: 2013Q2

REPORT INFORMATION
  Report Type: Spontaneous
  Country: US (occurrence: US)
  Receive Date: 20130506
  Receipt Date: 20130624
  Transmission Date: 20140414
  Serious: Yes (Hospitalization, Other)
  Sender: FDA-Public Use
  Company Number: US-PFIZER INC-2013138142

PATIENT
  Age: 64 Year
  Sex: Female
  Weight: 113 kg

DRUGS (3)
  1. AZITHROMYCIN [Suspect]
     Indication: DYSPNOEA
     Dosage: 250 MG, DAILY
     Dates: start: 20100302, end: 20101230
  2. LANTUS [Concomitant]
     Indication: DIABETES MELLITUS
     Dosage: 30 IU, DAILY
  3. NATURE-THYROID [Concomitant]
     Indication: THYROID DISORDER
     Dosage: 30 MG, DAILY

REACTIONS (7)
  - Bronchomalacia [Not Recovered/Not Resolved]
  - Tracheomalacia [Not Recovered/Not Resolved]
  - Hemiparesis [Unknown]
  - Dyspnoea [Recovering/Resolving]
  - Hypotonia [Not Recovered/Not Resolved]
  - Gait disturbance [Recovering/Resolving]
  - Pain [Recovering/Resolving]
